FAERS Safety Report 5686591-1 (Version None)
Quarter: 2008Q1

REPORT INFORMATION
  Report Type: 
  Country: None (occurrence: None)
  Receive Date: 20080328
  Receipt Date: 20070814
  Transmission Date: 20080703
  Serious: Yes (Other)
  Sender: FDA-Public Use
  Company Number: US-BAYER-US-2007-017586

PATIENT
  Age: 31 Year
  Sex: Female
  Weight: 68 kg

DRUGS (3)
  1. MIRENA [Suspect]
     Indication: CONTRACEPTION
     Route: 015
     Dates: start: 20020501, end: 20070101
  2. ZOLOFT [Concomitant]
     Indication: DEPRESSION
     Dosage: UNIT DOSE: 50 MG
     Route: 048
  3. WELLBUTRIN [Concomitant]
     Indication: DEPRESSION
     Dosage: UNIT DOSE: 150 MG
     Route: 048

REACTIONS (1)
  - IUCD COMPLICATION [None]
